FAERS Safety Report 8884737 (Version 1)
Quarter: 2012Q4

REPORT INFORMATION
  Report Type: 
  Country: US (occurrence: US)
  Receive Date: 20121102
  Receipt Date: 20121102
  Transmission Date: 20130627
  Serious: No
  Sender: FDA-Public Use
  Company Number: US-ASTRAZENECA-2012SE27908

PATIENT
  Age: 60 Year
  Sex: Female

DRUGS (7)
  1. OMEPRAZOLE [Suspect]
     Indication: ULCER
     Route: 048
  2. OMEPRAZOLE [Suspect]
     Indication: ULCER
     Route: 048
  3. VERAPAMIL [Concomitant]
     Indication: BLOOD PRESSURE ABNORMAL
  4. THYROID [Concomitant]
     Indication: HYPOTHYROIDISM
  5. BUMEX [Concomitant]
     Indication: DIURETIC THERAPY
  6. POTASSIUM SUPPLIMENT [Concomitant]
  7. STOOL SOFTENER [Concomitant]

REACTIONS (4)
  - Dyspepsia [Unknown]
  - Burning sensation [Unknown]
  - Intentional drug misuse [Unknown]
  - Drug ineffective [Unknown]
